FAERS Safety Report 13124109 (Version 2)
Quarter: 2017Q1

REPORT INFORMATION
  Report Type: Spontaneous
  Country: GB (occurrence: GB)
  Receive Date: 20170118
  Receipt Date: 20170321
  Transmission Date: 20170428
  Serious: Yes (Hospitalization)
  Sender: FDA-Public Use
  Company Number: GB-SUN PHARMACEUTICAL INDUSTRIES LTD-2017R1-131439

PATIENT
  Age: 63 Year
  Sex: Male

DRUGS (1)
  1. HYDROCORTISONE. [Suspect]
     Active Substance: HYDROCORTISONE
     Indication: ADDISON^S DISEASE
     Dosage: 100 MG, DAILY
     Route: 048

REACTIONS (4)
  - Spinal cord compression [Unknown]
  - Paraparesis [Unknown]
  - Epidural lipomatosis [Unknown]
  - Myopathy [Unknown]
